FAERS Safety Report 9837221 (Version 2)
Quarter: 2014Q2

REPORT INFORMATION
  Report Type: Spontaneous
  Country: US (occurrence: None)
  Receive Date: 20131205
  Receipt Date: 20140416
  Transmission Date: 20141212
  Serious: Yes (Hospitalization)
  Sender: FDA-Public Use
  Company Number: 163-POMAL-13111532

PATIENT
  Age: 58 Year
  Sex: Male
  Weight: 65.8 kg

DRUGS (8)
  1. POMALYST (POMALIDOMIDE) (4 MILLIGRAM, CAPSULES) [Suspect]
     Indication: PLASMA CELL MYELOMA
     Dosage: 4MG, 21 IN 21 D, PO
     Route: 048
     Dates: start: 201309
  2. CENTRUM (CENTRUM) (UNKNOWN) [Concomitant]
  3. DEXAMETHASONE (DEXAMETHASONE) [Concomitant]
  4. LORAZEPAM (LORAZEPAM) (TABLETS) [Concomitant]
  5. ATORVASTATIN CALCIUM (ATORVASTATIN CALCIUM) [Concomitant]
  6. AMBIEN (ZOLPIDEM TARTRATE) [Concomitant]
  7. NIACIN (NICOTINIC ACID) [Concomitant]
  8. ASPIRINE (ACETYLSALICYLIC ACID) [Concomitant]

REACTIONS (3)
  - Pyrexia [None]
  - Pneumonia [None]
  - Platelet count decreased [None]
